FAERS Safety Report 25539307 (Version 2)
Quarter: 2025Q3

REPORT INFORMATION
  Report Type: Spontaneous
  Country: EU (occurrence: EU)
  Receive Date: 20250710
  Receipt Date: 20250721
  Transmission Date: 20251021
  Serious: Yes (Other)
  Sender: AUROBINDO
  Company Number: EU-AUROBINDO-AUR-APL-2025-035124

PATIENT
  Age: 32 Year
  Sex: Female

DRUGS (28)
  1. SILDENAFIL [Suspect]
     Active Substance: SILDENAFIL
     Indication: Systemic scleroderma
     Route: 065
  2. SILDENAFIL [Suspect]
     Active Substance: SILDENAFIL
     Indication: Systemic scleroderma
  3. NINTEDANIB [Suspect]
     Active Substance: NINTEDANIB
     Indication: Systemic scleroderma
     Route: 065
  4. NINTEDANIB [Suspect]
     Active Substance: NINTEDANIB
     Indication: Rheumatoid arthritis
  5. NINTEDANIB [Suspect]
     Active Substance: NINTEDANIB
     Indication: Systemic scleroderma
  6. METHOTREXATE [Suspect]
     Active Substance: METHOTREXATE
     Indication: Systemic scleroderma
     Route: 065
  7. METHOTREXATE [Suspect]
     Active Substance: METHOTREXATE
     Indication: Systemic scleroderma
  8. METHOTREXATE [Suspect]
     Active Substance: METHOTREXATE
     Indication: Rheumatoid arthritis
  9. AZATHIOPRINE [Suspect]
     Active Substance: AZATHIOPRINE
     Indication: Systemic scleroderma
     Route: 065
  10. AZATHIOPRINE [Suspect]
     Active Substance: AZATHIOPRINE
     Indication: Rheumatoid arthritis
  11. AZATHIOPRINE [Suspect]
     Active Substance: AZATHIOPRINE
     Indication: Systemic scleroderma
  12. HYDROXYCHLOROQUINE [Suspect]
     Active Substance: HYDROXYCHLOROQUINE
     Indication: Systemic scleroderma
     Route: 065
  13. HYDROXYCHLOROQUINE [Suspect]
     Active Substance: HYDROXYCHLOROQUINE
     Indication: Rheumatoid arthritis
  14. HYDROXYCHLOROQUINE [Suspect]
     Active Substance: HYDROXYCHLOROQUINE
     Indication: Systemic scleroderma
  15. TOCILIZUMAB [Suspect]
     Active Substance: TOCILIZUMAB
     Indication: Systemic scleroderma
     Route: 065
  16. TOCILIZUMAB [Suspect]
     Active Substance: TOCILIZUMAB
     Indication: Cytokine release syndrome
  17. TOCILIZUMAB [Suspect]
     Active Substance: TOCILIZUMAB
     Indication: Rheumatoid arthritis
  18. TOCILIZUMAB [Suspect]
     Active Substance: TOCILIZUMAB
     Indication: Systemic scleroderma
  19. NIFEDIPINE [Suspect]
     Active Substance: NIFEDIPINE
     Indication: Systemic scleroderma
     Route: 065
  20. NIFEDIPINE [Suspect]
     Active Substance: NIFEDIPINE
     Indication: Rheumatoid arthritis
  21. NIFEDIPINE [Suspect]
     Active Substance: NIFEDIPINE
     Indication: Systemic scleroderma
  22. ILOPROST [Suspect]
     Active Substance: ILOPROST
     Indication: Systemic scleroderma
     Route: 065
  23. FLUDARABINE [Concomitant]
     Active Substance: FLUDARABINE PHOSPHATE
     Indication: Lymphodepletion
     Route: 065
  24. CYCLOPHOSPHAMIDE [Concomitant]
     Active Substance: CYCLOPHOSPHAMIDE
     Indication: Lymphodepletion
     Route: 065
  25. DEXAMETHASONE [Concomitant]
     Active Substance: DEXAMETHASONE
     Indication: Cytokine release syndrome
     Route: 065
  26. DEXAMETHASONE [Concomitant]
     Active Substance: DEXAMETHASONE
     Indication: Cytokine release syndrome
  27. PREDNISONE [Concomitant]
     Active Substance: PREDNISONE
     Indication: Cytokine release syndrome
     Route: 065
  28. PREDNISONE [Concomitant]
     Active Substance: PREDNISONE
     Indication: Cytokine release syndrome

REACTIONS (2)
  - Drug ineffective [Unknown]
  - Drug ineffective for unapproved indication [Unknown]
